FAERS Safety Report 10596245 (Version 1)
Quarter: 2014Q4

REPORT INFORMATION
  Report Type: Spontaneous
  Country: US (occurrence: US)
  Receive Date: 20141120
  Receipt Date: 20141120
  Transmission Date: 20150529
  Serious: Yes (Other)
  Sender: FDA-Public Use
  Company Number: US-LUNDBECK-DKLU1105732

PATIENT
  Sex: Male

DRUGS (2)
  1. ONFI [Suspect]
     Active Substance: CLOBAZAM
     Indication: PRODUCT USED FOR UNKNOWN INDICATION
     Dates: start: 2014
  2. DILANTIN [Concomitant]
     Active Substance: PHENYTOIN
     Indication: PRODUCT USED FOR UNKNOWN INDICATION

REACTIONS (1)
  - Dyspnoea [Unknown]
